FAERS Safety Report 4847676-2 (Version None)
Quarter: 2005Q4

REPORT INFORMATION
  Report Type: 
  Country: None (occurrence: None)
  Receive Date: 20051205
  Receipt Date: 20051128
  Transmission Date: 20060501
  Serious: Yes (Other)
  Sender: FDA-Public Use
  Company Number: 215536

PATIENT
  Age: 36 Year
  Sex: Male
  Weight: 95 kg

DRUGS (3)
  1. RAPTIVA [Suspect]
     Indication: PSORIASIS
     Dosage: 110 MG, 1/WEEK, SUBCUTANEOUS
     Route: 058
     Dates: start: 20050218, end: 20050506
  2. NEOTIGASON (ACITRETIN) [Concomitant]
  3. IBUPROFEN [Concomitant]

REACTIONS (7)
  - ARTHRALGIA [None]
  - DECREASED APPETITE [None]
  - JOINT STIFFNESS [None]
  - JOINT SWELLING [None]
  - SACROILIITIS [None]
  - SPINAL OSTEOARTHRITIS [None]
  - WEIGHT DECREASED [None]
